FAERS Safety Report 19811872 (Version 1)
Quarter: 2021Q3

REPORT INFORMATION
  Report Type: Spontaneous
  Country: US (occurrence: US)
  Receive Date: 20210909
  Receipt Date: 20210909
  Transmission Date: 20211014
  Serious: Yes (Hospitalization, Other)
  Sender: FDA-Public Use
  Company Number: US-HIKMA PHARMACEUTICALS USA INC.-US-H14001-21-03942

PATIENT
  Sex: Female

DRUGS (1)
  1. DEXAMETHASONE. [Suspect]
     Active Substance: DEXAMETHASONE
     Indication: TRANSITIONAL VERTEBRAE
     Route: 008

REACTIONS (5)
  - Muscle spasms [Not Recovered/Not Resolved]
  - Sensory disturbance [Unknown]
  - Myalgia [Unknown]
  - Hypoaesthesia [Unknown]
  - Flushing [Unknown]
